FAERS Safety Report 9721659 (Version 2)
Quarter: 2013Q4

REPORT INFORMATION
  Report Type: Spontaneous
  Country: US (occurrence: US)
  Receive Date: 20131201
  Receipt Date: 20131201
  Transmission Date: 20140711
  Serious: No
  Sender: FDA-Public Use
  Company Number: US-ABBVIE-13P-163-1147690-00

PATIENT
  Age: 72 Year
  Sex: Male
  Weight: 97.61 kg

DRUGS (5)
  1. ANDROGEL [Suspect]
     Indication: BLOOD TESTOSTERONE DECREASED
     Dates: start: 20130813, end: 20130913
  2. XALATAN [Concomitant]
     Indication: GLAUCOMA
  3. VYTORIN [Concomitant]
     Indication: BLOOD CHOLESTEROL INCREASED
  4. BENICAR [Concomitant]
     Indication: HYPERTENSION
  5. TAMSULOSIN [Concomitant]
     Indication: PRODUCT USED FOR UNKNOWN INDICATION

REACTIONS (1)
  - Blood testosterone decreased [Not Recovered/Not Resolved]
